FAERS Safety Report 17146332 (Version 1)
Quarter: 2019Q4

REPORT INFORMATION
  Report Type: Spontaneous
  Country: US (occurrence: US)
  Receive Date: 20191212
  Receipt Date: 20191212
  Transmission Date: 20200122
  Serious: No
  Sender: FDA-Public Use
  Company Number: US-UNITED THERAPEUTICS-UNT-2019-020643

PATIENT
  Age: 24 Year
  Sex: Female

DRUGS (1)
  1. REMODULIN [Suspect]
     Active Substance: TREPROSTINIL
     Indication: PULMONARY ARTERIAL HYPERTENSION
     Dosage: 0.08175 ?G/KG, CONTINUING
     Route: 058
     Dates: start: 20140814

REACTIONS (4)
  - Headache [Recovering/Resolving]
  - Infusion site pain [Not Recovered/Not Resolved]
  - Device malfunction [Unknown]
  - Nausea [Recovering/Resolving]

NARRATIVE: CASE EVENT DATE: 20191209
